FAERS Safety Report 7321245-7 (Version None)
Quarter: 2011Q1

REPORT INFORMATION
  Report Type: 
  Country: None (occurrence: None)
  Receive Date: 20110223
  Receipt Date: 20110223
  Transmission Date: 20110831
  Serious: Yes (Other)
  Sender: FDA-Public Use
  Company Number: None

PATIENT
  Sex: Male
  Weight: 127.0072 kg

DRUGS (2)
  1. OXYCONTIN [Suspect]
     Indication: INTERVERTEBRAL DISC DEGENERATION
     Dosage: 20 MG 3 X DAILY PO
     Route: 048
     Dates: start: 20110217, end: 20110222
  2. OXYCONTIN [Suspect]
     Indication: OSTEOARTHRITIS
     Dosage: 20 MG 3 X DAILY PO
     Route: 048
     Dates: start: 20110217, end: 20110222

REACTIONS (4)
  - GASTROINTESTINAL PAIN [None]
  - HYPERCHLORHYDRIA [None]
  - PRODUCT FORMULATION ISSUE [None]
  - DYSPEPSIA [None]
